FAERS Safety Report 7249278-X (Version None)
Quarter: 2011Q1

REPORT INFORMATION
  Report Type: 
  Country: None (occurrence: None)
  Receive Date: 20110128
  Receipt Date: 20101123
  Transmission Date: 20110831
  Serious: Yes (Hospitalization, Other)
  Sender: FDA-Public Use
  Company Number: US-BAYER-201033657NA

PATIENT
  Sex: Female
  Weight: 77.098 kg

DRUGS (12)
  1. YASMIN [Suspect]
     Indication: CONTRACEPTION
     Dosage: UNK
     Route: 048
     Dates: start: 20040601, end: 20060501
  2. TUSSI-BID [DEXTROMETHORPHAN HYDROBROMIDE,GUAIFENESIN] [Concomitant]
     Dosage: UNK
  3. PHENERGAN [Concomitant]
  4. YAZ [Suspect]
     Indication: CONTRACEPTION
     Dosage: UNK
     Route: 048
     Dates: start: 20040601, end: 20060501
  5. DICYCLOMINE [Concomitant]
     Dosage: UNK MG, UNK
     Dates: start: 20040927
  6. PAXIL CR [Concomitant]
     Dosage: UNK MG, UNK
     Dates: start: 20041018
  7. PREVACID [Concomitant]
  8. UNCODEABLE ^UNCLASSIFIABLE^ [Concomitant]
     Dosage: UNK UNK, BID
     Route: 048
  9. BENTYL [Concomitant]
  10. PROMETHAZINE [Concomitant]
     Dosage: UNK MG, UNK
     Dates: start: 20040927
  11. ZYRTEC [Concomitant]
     Indication: MULTIPLE ALLERGIES
     Dosage: UNK MG, UNK
     Dates: start: 20031201, end: 20050801
  12. UNCODEABLE ^UNCLASSIFIABLE^ [Concomitant]

REACTIONS (8)
  - ABDOMINAL PAIN [None]
  - GALLBLADDER DISORDER [None]
  - PAIN [None]
  - BILIARY DYSKINESIA [None]
  - DYSPEPSIA [None]
  - NAUSEA [None]
  - VOMITING [None]
  - IMPAIRED GASTRIC EMPTYING [None]
